FAERS Safety Report 8499665-7 (Version None)
Quarter: 2012Q3

REPORT INFORMATION
  Report Type: 
  Country: None (occurrence: None)
  Receive Date: 20120703
  Receipt Date: 20120703
  Transmission Date: 20120928
  Serious: No
  Sender: FDA-Public Use
  Company Number: None

PATIENT
  Age: 61 Year
  Sex: Female

DRUGS (1)
  1. ARANESP [Suspect]
     Dosage: 100 MCG ONCE A MONTH SUBCUTANEOUS
     Route: 058
     Dates: start: 20120101

REACTIONS (1)
  - DYSGEUSIA [None]
